FAERS Safety Report 8181891 (Version 6)
Quarter: 2013Q1

REPORT INFORMATION
  Report Type: Spontaneous
  Country: US (occurrence: US)
  Receive Date: 20111014
  Receipt Date: 20130312
  Transmission Date: 20140127
  Serious: Yes (Hospitalization, Disabling, Other)
  Sender: FDA-Public Use
  Company Number: US-009507513-1110USA01561

PATIENT
  Sex: Female
  Weight: 95.24 kg

DRUGS (7)
  1. FOSAMAX [Suspect]
     Indication: OSTEOPOROSIS
     Dosage: 70 MG, QW
     Route: 048
     Dates: start: 2000
  2. PRINIVIL [Concomitant]
     Dosage: 20 MG, QD
     Route: 048
  3. METOPROLOL [Concomitant]
     Dosage: 25 MG, QD
  4. ZOCOR [Concomitant]
     Indication: HYPERCHOLESTEROLAEMIA
     Dosage: 20 MG, HS
     Route: 048
  5. NORVASC [Concomitant]
     Indication: HYPERTENSION
     Dosage: 5-10 MG, QD
  6. TOPROL XL TABLETS [Concomitant]
     Indication: HYPERTENSION
     Dosage: 25-50 MG, QD
  7. HYDROCHLOROTHIAZIDE (+) LISINOPRIL [Concomitant]
     Indication: HYPERTENSION
     Dosage: 20/25 MG QD

REACTIONS (18)
  - Intramedullary rod insertion [Unknown]
  - Adverse event [Not Recovered/Not Resolved]
  - Renal failure [Unknown]
  - Femur fracture [Unknown]
  - Tooth disorder [Unknown]
  - Asthma [Unknown]
  - Osteopenia [Unknown]
  - Thyroid neoplasm [Unknown]
  - Goitre [Unknown]
  - Heart rate decreased [Unknown]
  - Biopsy breast [Unknown]
  - Biopsy thyroid gland [Unknown]
  - Urinary casts [Unknown]
  - White blood cells urine positive [Unknown]
  - Vision blurred [Unknown]
  - Ocular discomfort [Unknown]
  - Vitreous degeneration [Unknown]
  - Narrow anterior chamber angle [Unknown]
